FAERS Safety Report 8480139-4 (Version None)
Quarter: 2012Q2

REPORT INFORMATION
  Report Type: 
  Country: None (occurrence: None)
  Receive Date: 20120629
  Receipt Date: 20120627
  Transmission Date: 20120825
  Serious: Yes (Death)
  Sender: FDA-Public Use
  Company Number: GB-ABBOTT-12P-167-0950541-00

PATIENT
  Sex: Male
  Weight: 104 kg

DRUGS (1)
  1. HUMIRA [Suspect]
     Indication: RHEUMATOID ARTHRITIS
     Route: 058
     Dates: start: 20060514, end: 20080115

REACTIONS (4)
  - BRONCHOPNEUMONIA [None]
  - PANCREATIC NEUROENDOCRINE TUMOUR METASTATIC [None]
  - RENAL FAILURE ACUTE [None]
  - SEPSIS [None]
